FAERS Safety Report 8393124-8 (Version None)
Quarter: 2012Q2

REPORT INFORMATION
  Report Type: 
  Country: None (occurrence: None)
  Receive Date: 20120529
  Receipt Date: 20120416
  Transmission Date: 20120825
  Serious: No
  Sender: FDA-Public Use
  Company Number: US-ABBOTT-12P-163-0926844-00

PATIENT
  Sex: Male
  Weight: 97.61 kg

DRUGS (8)
  1. ANDROGEL [Suspect]
     Indication: BLOOD TESTOSTERONE DECREASED
     Dates: start: 20111101, end: 20120301
  2. ATIVA [Concomitant]
     Indication: INSOMNIA
  3. JANUVIA [Concomitant]
     Indication: DIABETES MELLITUS
  4. SYNTHROID [Concomitant]
     Indication: HYPOTHYROIDISM
  5. ANDROGEL [Suspect]
     Dates: start: 20120301
  6. LANTUS [Concomitant]
     Indication: DIABETES MELLITUS
  7. LISINOPRIL [Concomitant]
     Indication: BLOOD PRESSURE
  8. LIPITOR [Concomitant]
     Indication: BLOOD CHOLESTEROL

REACTIONS (1)
  - BLOOD TESTOSTERONE DECREASED [None]
